FAERS Safety Report 5950451-9 (Version None)
Quarter: 2008Q4

REPORT INFORMATION
  Report Type: 
  Country: None (occurrence: None)
  Receive Date: 20081112
  Receipt Date: 20081028
  Transmission Date: 20090506
  Serious: Yes (Hospitalization, Other)
  Sender: FDA-Public Use
  Company Number: PHHO2008TW06639

PATIENT
  Sex: Female

DRUGS (6)
  1. RAD 666 RAD+TAB+CMAS [Suspect]
     Indication: PANCREATIC NEUROENDOCRINE TUMOUR
     Dosage: UNK
     Route: 048
     Dates: start: 20080226, end: 20080301
  2. RAD 666 RAD+TAB+CMAS [Suspect]
     Dosage: NO TREATMENT
     Dates: start: 20080302, end: 20080321
  3. RAD 666 RAD+TAB+CMAS [Suspect]
     Dosage: UNK
     Route: 048
     Dates: start: 20080322, end: 20080401
  4. RAD 666 RAD+TAB+CMAS [Suspect]
     Dosage: NO TREATMENT
     Dates: start: 20080402, end: 20080429
  5. RAD 666 RAD+TAB+CMAS [Suspect]
     Dosage: UNK
     Dates: start: 20080430, end: 20080519
  6. TOFRANIL [Suspect]
     Dosage: UNK
     Dates: start: 20080516, end: 20080519

REACTIONS (25)
  - AORTIC ARTERIOSCLEROSIS [None]
  - BLADDER DISTENSION [None]
  - BLOOD PRESSURE SYSTOLIC INCREASED [None]
  - CAROTID ARTERIOSCLEROSIS [None]
  - CEREBRAL ATROPHY [None]
  - CONFUSIONAL STATE [None]
  - CONTUSION [None]
  - DIABETES MELLITUS INADEQUATE CONTROL [None]
  - FALL [None]
  - GENERAL PHYSICAL HEALTH DETERIORATION [None]
  - HUMERUS FRACTURE [None]
  - HYDROCEPHALUS [None]
  - LEUKOARAIOSIS [None]
  - OSTEOPOROSIS [None]
  - PLEURAL EFFUSION [None]
  - POLLAKIURIA [None]
  - PULMONARY CONGESTION [None]
  - PYURIA [None]
  - SCOLIOSIS [None]
  - SPINAL COMPRESSION FRACTURE [None]
  - SPINAL OSTEOARTHRITIS [None]
  - TONGUE ULCERATION [None]
  - URINARY RETENTION [None]
  - URINARY TRACT INFECTION [None]
  - URINE OUTPUT DECREASED [None]
